FAERS Safety Report 4808897-8 (Version None)
Quarter: 2005Q4

REPORT INFORMATION
  Report Type: 
  Country: None (occurrence: None)
  Receive Date: 20051024
  Receipt Date: 20051007
  Transmission Date: 20060501
  Serious: Yes (Hospitalization)
  Sender: FDA-Public Use
  Company Number: 32311

PATIENT
  Age: 65 Year
  Sex: Female

DRUGS (3)
  1. TRAVATAN [Suspect]
     Indication: GLAUCOMA
     Dosage: OPHT
     Route: 047
  2. BETAXOLOL HCL [Concomitant]
  3. TIMOLOL MALEATE [Concomitant]

REACTIONS (4)
  - CORNEAL OEDEMA [None]
  - DRUG INEFFECTIVE [None]
  - OCULAR HYPERAEMIA [None]
  - VISION BLURRED [None]
